FAERS Safety Report 8443816-7 (Version None)
Quarter: 2012Q2

REPORT INFORMATION
  Report Type: 
  Country: None (occurrence: None)
  Receive Date: 20120323
  Receipt Date: 20110608
  Transmission Date: 20120825
  Serious: Yes (Other)
  Sender: FDA-Public Use
  Company Number: 163-21880-11061647

PATIENT
  Sex: Female

DRUGS (3)
  1. COUMADIN [Concomitant]
  2. DEXAMETHASONE [Concomitant]
  3. REVLIMID [Suspect]
     Indication: MULTIPLE MYELOMA
     Dosage: 25 MG, DAILY X 28 DAYS, PO
     Route: 048
     Dates: start: 20080925

REACTIONS (5)
  - CATARACT [None]
  - HYPOAESTHESIA ORAL [None]
  - VISION BLURRED [None]
  - BURNING SENSATION [None]
  - DYSGEUSIA [None]
